FAERS Safety Report 22859320 (Version 5)
Quarter: 2023Q4

REPORT INFORMATION
  Report Type: Spontaneous
  Country: GB (occurrence: GB)
  Receive Date: 20230824
  Receipt Date: 20231004
  Transmission Date: 20240110
  Serious: Yes (Other)
  Sender: FDA-Public Use
  Company Number: GB-PFIZER INC-PV202300138905

PATIENT
  Age: 25 Year
  Sex: Female

DRUGS (1)
  1. ENBREL [Suspect]
     Active Substance: ETANERCEPT
     Indication: Juvenile idiopathic arthritis
     Dosage: 50 MG, WEEKLY
     Route: 058

REACTIONS (5)
  - Accidental exposure to product [Unknown]
  - Incorrect dose administered by device [Unknown]
  - Injection site bruising [Unknown]
  - Device defective [Unknown]
  - Device alarm issue [Unknown]

NARRATIVE: CASE EVENT DATE: 20230802
